FAERS Safety Report 8163012-0 (Version None)
Quarter: 2012Q1

REPORT INFORMATION
  Report Type: 
  Country: None (occurrence: None)
  Receive Date: 20120224
  Receipt Date: 20120220
  Transmission Date: 20120608
  Serious: Yes (Other)
  Sender: FDA-Public Use
  Company Number: FR-GILEAD-2012-0051125

PATIENT
  Sex: Female

DRUGS (4)
  1. COPEGUS [Concomitant]
     Indication: HEPATITIS C
     Dosage: UNK
     Dates: start: 20101001, end: 20111201
  2. PEGASYS [Concomitant]
     Indication: HEPATITIS C
     Dosage: UNK
     Dates: start: 20101001, end: 20111201
  3. TRUVADA [Suspect]
     Indication: HIV INFECTION
     Dosage: 1 DF, UNK
     Route: 048
     Dates: start: 20070701, end: 20120118
  4. KALETRA [Concomitant]
     Dosage: UNK
     Dates: start: 20070101

REACTIONS (3)
  - BLOOD PHOSPHORUS DECREASED [None]
  - HYPOURICAEMIA [None]
  - FANCONI SYNDROME ACQUIRED [None]
